FAERS Safety Report 25845050 (Version 1)
Quarter: 2025Q3

REPORT INFORMATION
  Report Type: Report from Study
  Country: EG (occurrence: EG)
  Receive Date: 20250925
  Receipt Date: 20250925
  Transmission Date: 20251021
  Serious: Yes (Death)
  Sender: ROCHE
  Company Number: EG-ROCHE-10000395683

PATIENT
  Age: 83 Year
  Sex: Female

DRUGS (1)
  1. MABTHERA [Suspect]
     Active Substance: RITUXIMAB
     Indication: Lymphoma
     Route: 058
     Dates: start: 20250407

REACTIONS (1)
  - Death [Fatal]
